FAERS Safety Report 11898436 (Version 1)
Quarter: 2016Q1

REPORT INFORMATION
  Report Type: Spontaneous
  Country: JP (occurrence: JP)
  Receive Date: 20160108
  Receipt Date: 20160108
  Transmission Date: 20160526
  Serious: Yes (Hospitalization)
  Sender: FDA-Public Use
  Company Number: JP-PFIZER INC-2016000941

PATIENT
  Age: 64 Year
  Sex: Female
  Weight: 63.9 kg

DRUGS (9)
  1. TAKEPRON [Suspect]
     Active Substance: LANSOPRAZOLE
     Indication: PEPTIC ULCER
     Dosage: 15 MG, 1X/DAY
     Route: 048
     Dates: start: 20150929
  2. AZULFIDINE EN-TABS [Suspect]
     Active Substance: SULFASALAZINE
     Indication: RHEUMATOID ARTHRITIS
     Dosage: 500 MG, 2X/DAY
     Route: 048
     Dates: start: 20150929, end: 20151010
  3. LOSARHYD [Concomitant]
     Dosage: UNK
  4. TEPRENONE [Concomitant]
     Active Substance: TEPRENONE
     Dosage: UNK
  5. OLOPATADINE [Concomitant]
     Active Substance: OLOPATADINE
     Dosage: UNK
  6. ATORVASTATIN [Concomitant]
     Active Substance: ATORVASTATIN
     Dosage: UNK
  7. PREDNISOLONE. [Suspect]
     Active Substance: PREDNISOLONE
     Indication: RHEUMATOID ARTHRITIS
     Dosage: 5 MG, DAILY
     Route: 048
     Dates: start: 20150929
  8. LOXOPROFEN [Concomitant]
     Active Substance: LOXOPROFEN
     Dosage: UNK
  9. HYALEIN [Concomitant]
     Active Substance: HYALURONATE SODIUM
     Dosage: UNK
     Route: 047

REACTIONS (5)
  - Cytopenia [Recovering/Resolving]
  - Renal disorder [Recovering/Resolving]
  - Liver disorder [Recovering/Resolving]
  - Generalised erythema [Recovering/Resolving]
  - Pyrexia [Recovering/Resolving]

NARRATIVE: CASE EVENT DATE: 20151010
